FAERS Safety Report 10195151 (Version 1)
Quarter: 2014Q2

REPORT INFORMATION
  Report Type: Spontaneous
  Country: US (occurrence: US)
  Receive Date: 20140526
  Receipt Date: 20140526
  Transmission Date: 20141212
  Serious: Yes (Other)
  Sender: FDA-Public Use
  Company Number: US-PFIZER INC-2014139852

PATIENT
  Age: 41 Year
  Sex: Female

DRUGS (1)
  1. NEURONTIN [Suspect]
     Indication: INTERVERTEBRAL DISC PROTRUSION
     Dosage: UNK
     Dates: start: 2011, end: 201405

REACTIONS (2)
  - Arthropathy [Unknown]
  - Dizziness [Unknown]
